FAERS Safety Report 7544887-2 (Version None)
Quarter: 2011Q2

REPORT INFORMATION
  Report Type: 
  Country: None (occurrence: None)
  Receive Date: 20110614
  Receipt Date: 20110606
  Transmission Date: 20111010
  Serious: Yes (Other)
  Sender: FDA-Public Use
  Company Number: US-BAYER-2011-050081

PATIENT
  Age: 18 Year
  Sex: Female

DRUGS (1)
  1. YASMIN [Suspect]
     Indication: PRODUCT USED FOR UNKNOWN INDICATION
     Dosage: UNK
     Dates: start: 20060201, end: 20070501

REACTIONS (6)
  - DEEP VEIN THROMBOSIS [None]
  - PAIN [None]
  - PSYCHIATRIC SYMPTOM [None]
  - ANXIETY [None]
  - ANHEDONIA [None]
  - FEAR [None]
